FAERS Safety Report 9831186 (Version 1)
Quarter: 2014Q1

REPORT INFORMATION
  Report Type: Report from Study
  Country: US (occurrence: US)
  Receive Date: 20140121
  Receipt Date: 20140121
  Transmission Date: 20141002
  Serious: Yes (Death, Other)
  Sender: FDA-Public Use
  Company Number: US-ROCHE-1335247

PATIENT
  Age: 50 Year
  Sex: Female

DRUGS (60)
  1. AVASTIN [Suspect]
     Indication: COLON CANCER
     Route: 065
  2. INFED [Concomitant]
     Route: 065
     Dates: start: 20100908
  3. FOLINIC ACID [Concomitant]
     Route: 065
     Dates: start: 20100921
  4. FOLINIC ACID [Concomitant]
     Route: 065
     Dates: start: 20101005
  5. FOLINIC ACID [Concomitant]
     Route: 065
     Dates: start: 20101101
  6. FOLINIC ACID [Concomitant]
     Route: 065
     Dates: start: 20101115
  7. FOLINIC ACID [Concomitant]
     Route: 065
     Dates: start: 20110107
  8. FOLINIC ACID [Concomitant]
     Route: 065
     Dates: start: 20110126
  9. FOLINIC ACID [Concomitant]
     Route: 065
     Dates: start: 20110208
  10. FOLINIC ACID [Concomitant]
     Route: 065
     Dates: start: 20110302
  11. FOLINIC ACID [Concomitant]
     Route: 065
     Dates: start: 20110329
  12. FOLINIC ACID [Concomitant]
     Route: 065
     Dates: start: 20110412
  13. FOLINIC ACID [Concomitant]
     Route: 065
     Dates: start: 20110426
  14. FOLINIC ACID [Concomitant]
     Route: 065
     Dates: start: 20110509
  15. FOLINIC ACID [Concomitant]
     Route: 065
     Dates: start: 20110525
  16. 5-FU [Concomitant]
     Route: 065
     Dates: start: 20100921
  17. 5-FU [Concomitant]
     Route: 065
     Dates: start: 20101005
  18. 5-FU [Concomitant]
     Route: 065
     Dates: start: 20101101
  19. 5-FU [Concomitant]
     Route: 065
     Dates: start: 20101115
  20. 5-FU [Concomitant]
     Route: 065
     Dates: start: 20110107
  21. 5-FU [Concomitant]
     Route: 065
     Dates: start: 20110126
  22. 5-FU [Concomitant]
     Route: 065
     Dates: start: 20110208
  23. 5-FU [Concomitant]
     Route: 065
     Dates: start: 20110302
  24. 5-FU [Concomitant]
     Route: 065
     Dates: start: 20110329
  25. 5-FU [Concomitant]
     Route: 065
     Dates: start: 20110412
  26. 5-FU [Concomitant]
     Route: 065
     Dates: start: 20110426
  27. 5-FU [Concomitant]
     Route: 065
     Dates: start: 20110509
  28. 5-FU [Concomitant]
     Route: 065
     Dates: start: 20110525
  29. IRINOTECAN [Concomitant]
     Route: 065
     Dates: start: 20100921
  30. IRINOTECAN [Concomitant]
     Route: 065
     Dates: start: 20101005
  31. IRINOTECAN [Concomitant]
     Route: 065
     Dates: start: 20101101
  32. IRINOTECAN [Concomitant]
     Route: 065
     Dates: start: 20101115
  33. IRINOTECAN [Concomitant]
     Route: 065
     Dates: start: 20110107
  34. IRINOTECAN [Concomitant]
     Route: 065
     Dates: start: 20110126
  35. IRINOTECAN [Concomitant]
     Route: 065
     Dates: start: 20110208
  36. IRINOTECAN [Concomitant]
     Route: 065
     Dates: start: 20110302
  37. IRINOTECAN [Concomitant]
     Route: 065
     Dates: start: 20110329
  38. IRINOTECAN [Concomitant]
     Route: 065
     Dates: start: 20110706
  39. IRINOTECAN [Concomitant]
     Route: 065
     Dates: start: 20110722
  40. IRINOTECAN [Concomitant]
     Route: 065
     Dates: start: 20110729
  41. IRINOTECAN [Concomitant]
     Route: 065
     Dates: start: 20110905
  42. IRINOTECAN [Concomitant]
     Route: 065
     Dates: start: 20110930
  43. IRINOTECAN [Concomitant]
     Route: 065
     Dates: start: 20111020
  44. IRINOTECAN [Concomitant]
     Route: 065
     Dates: start: 20111108
  45. IRINOTECAN [Concomitant]
     Route: 065
     Dates: start: 20111201
  46. OXALIPLATIN [Concomitant]
     Route: 065
     Dates: start: 20110412
  47. OXALIPLATIN [Concomitant]
     Route: 065
     Dates: start: 20110426
  48. OXALIPLATIN [Concomitant]
     Route: 065
     Dates: start: 20110509
  49. OXALIPLATIN [Concomitant]
     Route: 065
     Dates: start: 20110525
  50. CAMPTOTHECIN [Concomitant]
     Route: 065
     Dates: start: 20110706
  51. CAMPTOTHECIN [Concomitant]
     Route: 065
     Dates: start: 20110722
  52. ERBITUX [Concomitant]
     Route: 065
     Dates: start: 20110706
  53. ERBITUX [Concomitant]
     Route: 065
     Dates: start: 20110722
  54. ERBITUX [Concomitant]
     Route: 065
     Dates: start: 20110729
  55. ERBITUX [Concomitant]
     Route: 065
     Dates: start: 20110915
  56. ERBITUX [Concomitant]
     Route: 065
     Dates: start: 20110930
  57. ERBITUX [Concomitant]
     Route: 065
     Dates: start: 20111020
  58. ERBITUX [Concomitant]
     Route: 065
     Dates: start: 20111108
  59. ERBITUX [Concomitant]
     Route: 065
     Dates: start: 20111201
  60. LORTAB [Concomitant]
     Dosage: 5/500
     Route: 065

REACTIONS (10)
  - Colon cancer [Fatal]
  - Fistula [Unknown]
  - Nausea [Unknown]
  - Vomiting [Unknown]
  - Back pain [Unknown]
  - Dry skin [Unknown]
  - Erythema [Unknown]
  - Rash [Unknown]
  - Fall [Unknown]
  - Arthralgia [Unknown]
